FAERS Safety Report 5518160-8 (Version None)
Quarter: 2007Q4

REPORT INFORMATION
  Report Type: 
  Country: None (occurrence: None)
  Receive Date: 20071113
  Receipt Date: 20071113
  Transmission Date: 20080405
  Serious: Yes (Hospitalization, Other)
  Sender: FDA-Public Use
  Company Number: None

PATIENT
  Sex: Male
  Weight: 45.3597 kg

DRUGS (1)
  1. CLARITIN [Suspect]
     Dosage: 10 MG DAILY PO
     Route: 048
     Dates: start: 20071108

REACTIONS (2)
  - PRURITUS [None]
  - RASH ERYTHEMATOUS [None]
